FAERS Safety Report 15213416 (Version 2)
Quarter: 2018Q3

REPORT INFORMATION
  Report Type: Spontaneous
  Country: JP (occurrence: JP)
  Receive Date: 20180730
  Receipt Date: 20180809
  Transmission Date: 20181010
  Serious: Yes (Other)
  Sender: FDA-Public Use
  Company Number: JP-ASTELLAS-2018JP014528

PATIENT
  Age: 56 Year
  Sex: Female

DRUGS (1)
  1. PROGRAF [Suspect]
     Active Substance: TACROLIMUS\TACROLIMUS ANHYDROUS
     Indication: PRODUCT USED FOR UNKNOWN INDICATION
     Dosage: UNK UNK, UNKNOWN FREQ.
     Route: 048

REACTIONS (7)
  - Hepatic enzyme abnormal [Recovered/Resolved]
  - Oral candidiasis [Recovered/Resolved]
  - Blood bilirubin increased [Recovered/Resolved]
  - Spinal compression fracture [Recovered/Resolved]
  - Oedema peripheral [Recovered/Resolved]
  - Transplant rejection [Recovered/Resolved]
  - Hypokalaemia [Recovered/Resolved]
